FAERS Safety Report 4464128-2 (Version None)
Quarter: 2004Q4

REPORT INFORMATION
  Report Type: 
  Country: None (occurrence: None)
  Receive Date: 20041001
  Receipt Date: 20040924
  Transmission Date: 20050328
  Serious: Yes (Hospitalization, Other)
  Sender: FDA-Public Use
  Company Number: CA-JNJFOC-20040909465

PATIENT
  Sex: Female
  Weight: 55 kg

DRUGS (5)
  1. REMICADE [Suspect]
     Indication: RHEUMATOID ARTHRITIS
     Route: 042
  2. METHOTREXATE [Concomitant]
     Indication: RHEUMATOID ARTHRITIS
     Route: 058
  3. ARTHROTEC [Concomitant]
     Route: 049
  4. ARTHROTEC [Concomitant]
     Indication: RHEUMATOID ARTHRITIS
     Route: 049
  5. FOLIC ACID [Concomitant]
     Route: 049

REACTIONS (2)
  - DIARRHOEA [None]
  - VOMITING [None]
